FAERS Safety Report 14371864 (Version 1)
Quarter: 2018Q1

REPORT INFORMATION
  Report Type: Spontaneous
  Country: US (occurrence: US)
  Receive Date: 20180110
  Receipt Date: 20180110
  Transmission Date: 20180509
  Serious: Yes (Death, Hospitalization)
  Sender: FDA-Public Use
  Company Number: US-IMPAX LABORATORIES, INC-2017-IPXL-03862

PATIENT
  Age: 81 Year
  Sex: Male

DRUGS (1)
  1. RYTARY [Suspect]
     Active Substance: CARBIDOPA\LEVODOPA
     Indication: PARKINSON^S DISEASE
     Dosage: 23.75/95 MG, UNK
     Route: 065

REACTIONS (7)
  - Glassy eyes [Unknown]
  - Parkinson^s disease [Fatal]
  - Asthenia [Unknown]
  - Confusional state [Unknown]
  - Diarrhoea [Unknown]
  - Tremor [Unknown]
  - Amnesia [Unknown]
